FAERS Safety Report 6233142-9 (Version None)
Quarter: 2009Q2

REPORT INFORMATION
  Report Type: 
  Country: None (occurrence: None)
  Receive Date: 20090612
  Receipt Date: 20090609
  Transmission Date: 20091009
  Serious: Yes (Death)
  Sender: FDA-Public Use
  Company Number: 2009SP010733

PATIENT
  Age: 57 Year
  Sex: Male

DRUGS (15)
  1. PEG-INTRON [Suspect]
     Indication: HEPATITIS C
     Dosage: SC
     Route: 058
     Dates: start: 20090217
  2. REBETOL [Suspect]
     Indication: HEPATITIS C
     Dosage: PO
     Route: 048
     Dates: start: 20090217
  3. LISINOPRIL [Concomitant]
  4. LISINOPRIL AND HYDROCHLOROTHIAZIDE [Concomitant]
  5. GABAPENTIN [Concomitant]
  6. VIRACEPT [Concomitant]
  7. TRUVADA [Concomitant]
  8. SOMA [Concomitant]
  9. ENDOCET [Concomitant]
  10. CITALOPRAM HYDROBROMIDE [Concomitant]
  11. MIRTAZAPINE [Concomitant]
  12. GEMFIBROZIL [Concomitant]
  13. REGLAN [Concomitant]
  14. XANAX [Concomitant]
  15. TEMAZEPAM [Concomitant]

REACTIONS (1)
  - SLEEP APNOEA SYNDROME [None]
